FAERS Safety Report 13690024 (Version 2)
Quarter: 2017Q3

REPORT INFORMATION
  Report Type: Report from Study
  Country: IT (occurrence: IT)
  Receive Date: 20170626
  Receipt Date: 20170719
  Transmission Date: 20171127
  Serious: Yes (Hospitalization, Other)
  Sender: FDA-Public Use
  Company Number: IT-MYLANLABS-2017M1037244

PATIENT

DRUGS (8)
  1. ETOPOSIDE TEVA [Interacting]
     Active Substance: ETOPOSIDE
     Indication: NON-HODGKIN^S LYMPHOMA
     Dosage: 70 MG, CYCLE
     Route: 042
     Dates: start: 20170228
  2. ETAPIAM [Interacting]
     Active Substance: ETHAMBUTOL HYDROCHLORIDE
     Indication: ANTIBIOTIC PROPHYLAXIS
     Dosage: 1200 MG
     Route: 048
     Dates: start: 20170201, end: 20170530
  3. RIFADIN [Interacting]
     Active Substance: RIFAMPIN
     Indication: ANTIBIOTIC PROPHYLAXIS
     Dosage: 600 MG
     Route: 048
     Dates: start: 20170201, end: 20170530
  4. MABTHERA [Interacting]
     Active Substance: RITUXIMAB
     Indication: NON-HODGKIN^S LYMPHOMA
     Dosage: 500 MG, CYCLE
     Route: 042
     Dates: start: 20170327
  5. DOXORUBICINA ACCORD HEALTHCARE ITALIA [Interacting]
     Active Substance: DOXORUBICIN HYDROCHLORIDE
     Indication: NON-HODGKIN^S LYMPHOMA
     Dosage: 15 MG, CYCLE
     Route: 042
     Dates: start: 20170228
  6. ENDOXAN [Interacting]
     Active Substance: CYCLOPHOSPHAMIDE
     Indication: NON-HODGKIN^S LYMPHOMA
     Dosage: 720 MG, CYCLE
     Route: 042
     Dates: start: 20170303
  7. KLACID [Suspect]
     Active Substance: CLARITHROMYCIN
     Indication: ANTIBIOTIC PROPHYLAXIS
     Dosage: 1000 MG
     Route: 048
     Dates: start: 20170201, end: 20170530
  8. VINCRISTINA TEVA [Interacting]
     Active Substance: VINCRISTINE
     Indication: NON-HODGKIN^S LYMPHOMA
     Dosage: 0.4 MG, CYCLE
     Route: 042
     Dates: start: 20170228

REACTIONS (2)
  - Leukopenia [Unknown]
  - Drug interaction [Unknown]

NARRATIVE: CASE EVENT DATE: 20170508
